FAERS Safety Report 6764363-4 (Version None)
Quarter: 2010Q2

REPORT INFORMATION
  Report Type: 
  Country: None (occurrence: None)
  Receive Date: 20100610
  Receipt Date: 20100607
  Transmission Date: 20101027
  Serious: Yes (Other)
  Sender: FDA-Public Use
  Company Number: US-BRISTOL-MYERS SQUIBB COMPANY-14933618

PATIENT
  Age: 53 Year
  Sex: Female
  Weight: 68 kg

DRUGS (10)
  1. ABILIFY [Suspect]
     Indication: BIPOLAR DISORDER
     Dosage: 1 DF:5-10MG P.O. 5MG 1 TABLET DAILY ALTERNATING WITH 10MG 1 TABLET DAILY. RESUME 2006
     Route: 048
     Dates: start: 20050101
  2. ABILIFY [Suspect]
     Indication: BIPOLAR I DISORDER
     Dosage: 1 DF:5-10MG P.O. 5MG 1 TABLET DAILY ALTERNATING WITH 10MG 1 TABLET DAILY. RESUME 2006
     Route: 048
     Dates: start: 20050101
  3. SYNTHROID [Concomitant]
  4. OMEPRAZOLE [Concomitant]
  5. KLONOPIN [Concomitant]
     Dosage: 1/2 TABLET
  6. VITAMIN C [Concomitant]
  7. LOVAZA [Concomitant]
  8. LASIX [Concomitant]
     Route: 048
     Dates: start: 20100105
  9. MULTI-VITAMIN [Concomitant]
  10. LAXATIVES [Concomitant]

REACTIONS (7)
  - HYPERTENSION [None]
  - MUSCLE TIGHTNESS [None]
  - NAUSEA [None]
  - OEDEMA [None]
  - PARAESTHESIA [None]
  - RENAL FAILURE [None]
  - WEIGHT INCREASED [None]
